FAERS Safety Report 16759640 (Version 2)
Quarter: 2019Q4

REPORT INFORMATION
  Report Type: Spontaneous
  Country: CN (occurrence: CN)
  Receive Date: 20190830
  Receipt Date: 20191127
  Transmission Date: 20200122
  Serious: Yes (Hospitalization)
  Sender: FDA-Public Use
  Company Number: CN-ASTRAZENECA-2019SF22109

PATIENT
  Age: 29 Year
  Sex: Female
  Weight: 53 kg

DRUGS (7)
  1. SEROQUEL [Suspect]
     Active Substance: QUETIAPINE FUMARATE
     Indication: BIPOLAR DISORDER
     Route: 048
     Dates: start: 20190813, end: 20190813
  2. SUCCINYLCHOLINE CHLORIDE. [Suspect]
     Active Substance: SUCCINYLCHOLINE CHLORIDE
     Indication: BIPOLAR DISORDER
     Route: 041
     Dates: start: 20190812, end: 20190812
  3. ATROPINE SULFATE. [Suspect]
     Active Substance: ATROPINE SULFATE
     Indication: BIPOLAR DISORDER
     Route: 041
     Dates: start: 20190812, end: 20190812
  4. SEROQUEL [Suspect]
     Active Substance: QUETIAPINE FUMARATE
     Indication: BIPOLAR DISORDER
     Route: 048
     Dates: start: 20190808, end: 20190812
  5. FORLI [ETOMIDATE] [Suspect]
     Active Substance: ETOMIDATE
     Indication: BIPOLAR DISORDER
     Route: 041
     Dates: start: 20190812, end: 20190812
  6. VALPROATE SODIUM. [Suspect]
     Active Substance: VALPROATE SODIUM
     Indication: BIPOLAR DISORDER
     Dosage: 500MG, 0.5 DAYS
     Route: 048
     Dates: start: 20190805, end: 20190812
  7. SODIUM CHLORIDE. [Concomitant]
     Active Substance: SODIUM CHLORIDE
     Indication: BIPOLAR DISORDER
     Route: 041
     Dates: start: 20190812, end: 20190812

REACTIONS (2)
  - Pruritus [Recovered/Resolved]
  - Rash [Recovered/Resolved]

NARRATIVE: CASE EVENT DATE: 20190813
